FAERS Safety Report 4663096-8 (Version None)
Quarter: 2005Q2

REPORT INFORMATION
  Report Type: 
  Country: None (occurrence: None)
  Receive Date: 20050511
  Receipt Date: 20050228
  Transmission Date: 20051028
  Serious: Yes (Other)
  Sender: FDA-Public Use
  Company Number: 397131

PATIENT
  Age: 46 Year
  Sex: Female
  Weight: 67.1 kg

DRUGS (2)
  1. PEGASYS [Suspect]
     Dosage: 180  MCG 1 PER 1 WEEK SUBCUTANEOUS
     Route: 058
     Dates: start: 20050102
  2. COPEGUS [Suspect]
     Indication: HEPATITIS C
     Dosage: 1000 MG 1 PER DAY ORAL
     Route: 048
     Dates: start: 20050102

REACTIONS (10)
  - CONFUSIONAL STATE [None]
  - CRYING [None]
  - HAEMOGLOBIN DECREASED [None]
  - INFLUENZA LIKE ILLNESS [None]
  - INSOMNIA [None]
  - NIGHTMARE [None]
  - PLATELET COUNT DECREASED [None]
  - SUICIDAL IDEATION [None]
  - WEIGHT DECREASED [None]
  - WHITE BLOOD CELL COUNT DECREASED [None]
